FAERS Safety Report 6750556-9 (Version None)
Quarter: 2010Q2

REPORT INFORMATION
  Report Type: 
  Country: None (occurrence: None)
  Receive Date: 20100601
  Receipt Date: 20100518
  Transmission Date: 20101027
  Serious: Yes (Other)
  Sender: FDA-Public Use
  Company Number: US-MYLANLABS-2010S1008710

PATIENT
  Age: 30 Year
  Sex: Male

DRUGS (4)
  1. ABACAVIR [Suspect]
     Indication: ANTIRETROVIRAL THERAPY
     Route: 065
  2. STAVUDINE [Suspect]
     Indication: ANTIRETROVIRAL THERAPY
     Route: 065
  3. AMPRENAVIR [Suspect]
     Indication: ANTIRETROVIRAL THERAPY
     Route: 065
  4. CIDOFOVIR [Concomitant]
     Route: 065

REACTIONS (1)
  - PROGRESSIVE MULTIFOCAL LEUKOENCEPHALOPATHY [None]
